FAERS Safety Report 10092379 (Version 1)
Quarter: 2014Q2

REPORT INFORMATION
  Report Type: Spontaneous
  Country: US (occurrence: US)
  Receive Date: 20140421
  Receipt Date: 20140421
  Transmission Date: 20141212
  Serious: No
  Sender: FDA-Public Use
  Company Number: US-SANOFI-AVENTIS-2013SA049667

PATIENT
  Age: 65 Year
  Sex: Female

DRUGS (3)
  1. ALLEGRA [Suspect]
  2. ALLEGRA [Suspect]
  3. ALLEGRA [Suspect]

REACTIONS (3)
  - Back pain [Recovered/Resolved]
  - Nausea [Recovered/Resolved]
  - Movement disorder [Recovered/Resolved]
